FAERS Safety Report 19239097 (Version 1)
Quarter: 2021Q2

REPORT INFORMATION
  Report Type: Other
  Country: GB (occurrence: GB)
  Receive Date: 20210510
  Receipt Date: 20210510
  Transmission Date: 20210717
  Serious: Yes (Other)
  Sender: FDA-Public Use
  Company Number: GB-ROCHE-2826158

PATIENT

DRUGS (7)
  1. MYCOPHENOLATE MOFETIL. [Suspect]
     Active Substance: MYCOPHENOLATE MOFETIL
     Indication: THROMBOTIC THROMBOCYTOPENIC PURPURA
     Route: 065
  2. OFATUMUMAB [Suspect]
     Active Substance: OFATUMUMAB
     Indication: THROMBOTIC THROMBOCYTOPENIC PURPURA
     Route: 065
  3. BORTEZOMIB. [Suspect]
     Active Substance: BORTEZOMIB
     Indication: THROMBOTIC THROMBOCYTOPENIC PURPURA
     Route: 065
  4. CYCLOPHOSPHAMIDE. [Suspect]
     Active Substance: CYCLOPHOSPHAMIDE
     Indication: THROMBOTIC THROMBOCYTOPENIC PURPURA
     Route: 065
  5. RITUXIMAB. [Suspect]
     Active Substance: RITUXIMAB
     Indication: THROMBOTIC THROMBOCYTOPENIC PURPURA
     Route: 065
  6. CAPLACIZUMAB [Suspect]
     Active Substance: CAPLACIZUMAB
     Indication: THROMBOTIC THROMBOCYTOPENIC PURPURA
     Route: 065
  7. N?ACETYLCYSTEINE [Suspect]
     Active Substance: ACETYLCYSTEINE
     Indication: THROMBOTIC THROMBOCYTOPENIC PURPURA
     Route: 065

REACTIONS (14)
  - Embolism venous [Unknown]
  - Epistaxis [Unknown]
  - Traumatic haemorrhage [Unknown]
  - Haemorrhage intracranial [Unknown]
  - Injection site reaction [Unknown]
  - Rash [Unknown]
  - Haemarthrosis [Unknown]
  - Hypersensitivity [Unknown]
  - Contusion [Unknown]
  - Liver function test abnormal [Unknown]
  - Febrile neutropenia [Unknown]
  - Lower gastrointestinal haemorrhage [Unknown]
  - Upper gastrointestinal haemorrhage [Unknown]
  - Gingival bleeding [Unknown]
